FAERS Safety Report 10312306 (Version 2)
Quarter: 2014Q3

REPORT INFORMATION
  Report Type: Spontaneous
  Country: US (occurrence: US)
  Receive Date: 20140718
  Receipt Date: 20140825
  Transmission Date: 20150326
  Serious: Yes (Hospitalization, Disabling)
  Sender: FDA-Public Use
  Company Number: US-MERCK-1407USA006228

PATIENT
  Age: 24 Year
  Sex: Male

DRUGS (2)
  1. ISENTRESS [Suspect]
     Active Substance: RALTEGRAVIR POTASSIUM
     Indication: HIV INFECTION
     Dosage: 400 MG; TWICE DAILY
     Route: 048
     Dates: start: 201405
  2. TRUVADA [Concomitant]
     Active Substance: EMTRICITABINE\TENOFOVIR DISOPROXIL FUMARATE
     Dosage: UNK

REACTIONS (4)
  - Nervous system disorder [Unknown]
  - Adverse event [Unknown]
  - Cytomegalovirus infection [Recovering/Resolving]
  - Retinopexy [Recovering/Resolving]

NARRATIVE: CASE EVENT DATE: 2014
